FAERS Safety Report 17373117 (Version 1)
Quarter: 2020Q1

REPORT INFORMATION
  Report Type: Spontaneous
  Country: PT (occurrence: PT)
  Receive Date: 20200205
  Receipt Date: 20200205
  Transmission Date: 20200409
  Serious: Yes (Other)
  Sender: FDA-Public Use
  Company Number: PT-TEVA-2020-PT-1181400

PATIENT
  Age: 59 Year
  Sex: Male
  Weight: 100 kg

DRUGS (3)
  1. CIPROFLOXACINA RATIOPHARM 500 MG COMPRIMIDOS REVESTIDOS [Suspect]
     Active Substance: CIPROFLOXACIN
     Indication: CYSTITIS
     Dosage: 12 IN 12 HOURS , 500 MG 12 HOURS
     Route: 048
     Dates: start: 20200112, end: 20200116
  2. ENALAPRIL [Concomitant]
     Active Substance: ENALAPRIL
     Indication: PRODUCT USED FOR UNKNOWN INDICATION
     Route: 048
  3. DABIGATRAN ETEXILATE [Concomitant]
     Active Substance: DABIGATRAN ETEXILATE
     Indication: PRODUCT USED FOR UNKNOWN INDICATION
     Route: 048

REACTIONS (2)
  - Gingival bleeding [Recovered/Resolved]
  - Swelling face [Recovered/Resolved]

NARRATIVE: CASE EVENT DATE: 20200113
